FAERS Safety Report 6406837-1 (Version None)
Quarter: 2009Q4

REPORT INFORMATION
  Report Type: 
  Country: None (occurrence: None)
  Receive Date: 20091015
  Receipt Date: 20040430
  Transmission Date: 20100525
  Serious: Yes (Death)
  Sender: FDA-Public Use
  Company Number: 2009008939

PATIENT
  Sex: Male

DRUGS (1)
  1. ACTIQ [Suspect]
     Indication: NEOPLASM MALIGNANT
     Dosage: BU
     Route: 002
     Dates: end: 20040201

REACTIONS (1)
  - MALIGNANT NEOPLASM PROGRESSION [None]
